FAERS Safety Report 5468540-4 (Version None)
Quarter: 2007Q3

REPORT INFORMATION
  Report Type: 
  Country: None (occurrence: None)
  Receive Date: 20070926
  Receipt Date: 20070831
  Transmission Date: 20080115
  Serious: No
  Sender: FDA-Public Use
  Company Number: US-BRISTOL-MYERS SQUIBB COMPANY-13895222

PATIENT

DRUGS (1)
  1. ORENCIA [Suspect]

REACTIONS (1)
  - DYSPNOEA [None]
